FAERS Safety Report 7622558-1 (Version None)
Quarter: 2011Q3

REPORT INFORMATION
  Report Type: 
  Country: None (occurrence: None)
  Receive Date: 20110719
  Receipt Date: 20110719
  Transmission Date: 20111222
  Serious: Yes (Other)
  Sender: FDA-Public Use
  Company Number: None

PATIENT
  Sex: Female

DRUGS (1)
  1. RESTASIS [Suspect]
     Indication: DRY EYE
     Dosage: 1 DROP TWICE DAILY OPHTHALMIC
     Route: 047
     Dates: start: 20110609, end: 20110623

REACTIONS (4)
  - RASH GENERALISED [None]
  - SKIN BURNING SENSATION [None]
  - SKIN SWELLING [None]
  - RENAL DISORDER [None]
